FAERS Safety Report 12355813 (Version 1)
Quarter: 2016Q2

REPORT INFORMATION
  Report Type: Spontaneous
  Country: US (occurrence: US)
  Receive Date: 20160511
  Receipt Date: 20160511
  Transmission Date: 20160815
  Serious: Yes (Other)
  Sender: FDA-Public Use
  Company Number: US-AMGEN-USASP2016057619

PATIENT
  Sex: Male

DRUGS (2)
  1. NEUPOGEN [Suspect]
     Active Substance: FILGRASTIM
     Indication: HAEMATOPOIETIC STEM CELL MOBILISATION
     Dosage: UNK
     Route: 065
  2. MOZOBIL [Concomitant]
     Active Substance: PLERIXAFOR
     Dosage: UNK

REACTIONS (2)
  - Schizophrenia [Not Recovered/Not Resolved]
  - Drug effect incomplete [Unknown]
